FAERS Safety Report 8599152 (Version 3)
Quarter: 2013Q1

REPORT INFORMATION
  Report Type: Spontaneous
  Country: US (occurrence: US)
  Receive Date: 20120605
  Receipt Date: 20130220
  Transmission Date: 20140127
  Serious: No
  Sender: FDA-Public Use
  Company Number: US-ASTRAZENECA-2012SE31418

PATIENT
  Age: 80 Year
  Sex: Female

DRUGS (4)
  1. ARIMIDEX [Suspect]
     Route: 048
  2. ARICEPT [Concomitant]
  3. NAMENDA [Concomitant]
  4. VENLAFAXINE [Concomitant]

REACTIONS (3)
  - Dementia Alzheimer^s type [Unknown]
  - Dementia [Unknown]
  - Abdominal discomfort [Unknown]
